FAERS Safety Report 8222631-3 (Version None)
Quarter: 2012Q1

REPORT INFORMATION
  Report Type: 
  Country: None (occurrence: None)
  Receive Date: 20120315
  Receipt Date: 20120306
  Transmission Date: 20120608
  Serious: Yes (Hospitalization)
  Sender: FDA-Public Use
  Company Number: 2011SP008255

PATIENT
  Age: 57 Year
  Sex: Male

DRUGS (2)
  1. MIRTAZAPINE [Suspect]
     Indication: DEPRESSION
     Dosage: 30 MG;QD;PO, 15 MG;QD;PO
     Route: 048
     Dates: start: 20110120
  2. MIRTAZAPINE [Suspect]
     Indication: DEPRESSION
     Dosage: 30 MG;QD;PO, 15 MG;QD;PO
     Route: 048
     Dates: start: 20101008, end: 20110119

REACTIONS (3)
  - ANAEMIA [None]
  - RENAL FAILURE CHRONIC [None]
  - HAEMODIALYSIS [None]
